FAERS Safety Report 21394525 (Version 1)
Quarter: 2022Q3

REPORT INFORMATION
  Report Type: Report from Study
  Country: US (occurrence: US)
  Receive Date: 20220930
  Receipt Date: 20220930
  Transmission Date: 20221026
  Serious: Yes (Other)
  Sender: FDA-Public Use
  Company Number: US-NOVARTISPH-NVSC2022US218378

PATIENT
  Sex: Female

DRUGS (1)
  1. ENTRESTO [Suspect]
     Active Substance: SACUBITRIL\VALSARTAN
     Indication: Cardiac failure
     Dosage: 1 DOSAGE FORM, BID
     Route: 065
     Dates: start: 202108

REACTIONS (8)
  - Arrhythmia [Not Recovered/Not Resolved]
  - Ejection fraction decreased [Not Recovered/Not Resolved]
  - Angina pectoris [Unknown]
  - Chest pain [Recovering/Resolving]
  - Depressed mood [Unknown]
  - Dyspnoea exertional [Recovering/Resolving]
  - Abdominal distension [Unknown]
  - Dizziness postural [Recovering/Resolving]
